FAERS Safety Report 16893558 (Version 1)
Quarter: 2019Q4

REPORT INFORMATION
  Report Type: Spontaneous
  Country: BG (occurrence: BG)
  Receive Date: 20191008
  Receipt Date: 20191008
  Transmission Date: 20200122
  Serious: Yes (Hospitalization)
  Sender: FDA-Public Use
  Company Number: BG-ROCHE-2422471

PATIENT
  Age: 60 Year
  Sex: Female

DRUGS (16)
  1. MYCOPHENOLATE MOFETIL. [Suspect]
     Active Substance: MYCOPHENOLATE MOFETIL
     Dosage: 2 DF, TID (3X2TABLETS)
     Route: 048
  2. PANTOPRAZOLE [Concomitant]
     Active Substance: PANTOPRAZOLE
     Dosage: 1 DF, BID (2X1TABLET)
     Route: 048
     Dates: start: 201903
  3. BISOPROLOL [Suspect]
     Active Substance: BISOPROLOL
     Indication: CARDIAC FAILURE
     Dosage: 2.5 MG, QD
     Route: 048
     Dates: start: 201903
  4. ACYCLOVIR [ACICLOVIR] [Concomitant]
     Active Substance: ACYCLOVIR
     Indication: CARDIOTOXICITY
     Dosage: 1 DF, TID (3X1TABLET)
     Route: 048
     Dates: start: 201903
  5. URSODEOXYCHOLIC ACID [Concomitant]
     Active Substance: URSODIOL
     Indication: CARDIOTOXICITY
     Dosage: 1 DF, BID (2X1 TABLET)
     Route: 048
     Dates: start: 201903
  6. CYCLOPHOSPHAMIDE. [Suspect]
     Active Substance: CYCLOPHOSPHAMIDE
     Indication: MYELOID LEUKAEMIA
     Dosage: UNK
     Route: 065
  7. AMLODIPINE [Suspect]
     Active Substance: AMLODIPINE BESYLATE
     Indication: CARDIOTOXICITY
     Dosage: 1 DF, BID (2X1 TABLET)
     Route: 048
     Dates: start: 201903
  8. URSODEOXYCHOLIC ACID [Concomitant]
     Active Substance: URSODIOL
     Dosage: 250 MG, BID
     Route: 065
  9. MYCOPHENOLATE MOFETIL. [Suspect]
     Active Substance: MYCOPHENOLATE MOFETIL
     Indication: MYELOID LEUKAEMIA
     Dosage: 500 MG, TID
     Route: 048
  10. RAMIPRIL. [Suspect]
     Active Substance: RAMIPRIL
     Indication: CARDIAC FAILURE
     Dosage: 5 MG, BID
     Route: 065
  11. RAMIPRIL. [Suspect]
     Active Substance: RAMIPRIL
     Dosage: 1 DF, BID (2X1TABLET)
     Route: 048
     Dates: start: 201903
  12. ACYCLOVIR [ACICLOVIR] [Concomitant]
     Active Substance: ACYCLOVIR
     Dosage: 400 MG, TID
     Route: 065
  13. TRIMETAZIDINE [Concomitant]
     Active Substance: TRIMETAZIDINE
     Indication: CARDIOTOXICITY
     Dosage: 1 DF, BID (2X1 TABLET)
     Route: 048
     Dates: start: 201903
  14. METHYLPREDNISOLONE. [Concomitant]
     Active Substance: METHYLPREDNISOLONE
     Indication: CARDIOTOXICITY
     Dosage: 16 MG, QD
     Route: 048
     Dates: start: 201903
  15. PANTOPRAZOLE [Concomitant]
     Active Substance: PANTOPRAZOLE
     Indication: CARDIOTOXICITY
     Dosage: 20 MG, BID
     Route: 065
  16. SPIRONOLACTONE. [Concomitant]
     Active Substance: SPIRONOLACTONE
     Indication: CARDIOTOXICITY
     Dosage: 1 DF, BID (2X1 TABLET)
     Route: 048
     Dates: start: 201903

REACTIONS (12)
  - Rales [Recovering/Resolving]
  - Tricuspid valve incompetence [Recovered/Resolved]
  - Cardiac failure [Recovering/Resolving]
  - Peripheral swelling [Recovering/Resolving]
  - Mitral valve incompetence [Recovering/Resolving]
  - Pulmonary hypertension [Recovering/Resolving]
  - Joint swelling [Recovering/Resolving]
  - Dyspnoea [Recovered/Resolved]
  - Off label use [Unknown]
  - Fatigue [Recovering/Resolving]
  - General physical health deterioration [Recovering/Resolving]
  - Cardiotoxicity [Recovering/Resolving]

NARRATIVE: CASE EVENT DATE: 201903
